FAERS Safety Report 7868256-0 (Version None)
Quarter: 2011Q4

REPORT INFORMATION
  Report Type: 
  Country: None (occurrence: None)
  Receive Date: 20111028
  Receipt Date: 20111019
  Transmission Date: 20120403
  Serious: Yes (Other)
  Sender: FDA-Public Use
  Company Number: US-RB-028078-11

PATIENT
  Sex: Male

DRUGS (3)
  1. SUBUTEX [Suspect]
     Route: 064
     Dates: start: 20100101, end: 20101025
  2. SUBUTEX [Suspect]
     Indication: DRUG DEPENDENCE
     Route: 064
     Dates: start: 20100722, end: 20100101
  3. SUBOXONE [Suspect]
     Indication: DRUG DEPENDENCE
     Route: 064
     Dates: start: 20100301, end: 20100721

REACTIONS (3)
  - NYSTAGMUS [None]
  - MATERNAL EXPOSURE DURING PREGNANCY [None]
  - PREMATURE BABY [None]
